FAERS Safety Report 21240339 (Version 1)
Quarter: 2022Q3

REPORT INFORMATION
  Report Type: Report from Study
  Country: US (occurrence: US)
  Receive Date: 20220822
  Receipt Date: 20220822
  Transmission Date: 20221027
  Serious: Yes (Other)
  Sender: FDA-Public Use
  Company Number: US-SEATTLE GENETICS-2022SGN07624

PATIENT
  Sex: Female

DRUGS (5)
  1. TUCATINIB [Suspect]
     Active Substance: TUCATINIB
     Indication: Breast cancer
     Route: 065
  2. TUCATINIB [Suspect]
     Active Substance: TUCATINIB
     Indication: Metastases to liver
  3. TUCATINIB [Suspect]
     Active Substance: TUCATINIB
     Indication: Cholangiocarcinoma
  4. DECADRON [Suspect]
     Active Substance: DEXAMETHASONE
     Indication: Breast cancer
     Dosage: 2 MG EVERY MORNING
     Route: 065
  5. DECADRON [Suspect]
     Active Substance: DEXAMETHASONE
     Indication: Metastases to liver

REACTIONS (5)
  - Unresponsive to stimuli [Unknown]
  - Hypersomnia [Unknown]
  - Eating disorder symptom [Unknown]
  - General physical health deterioration [Unknown]
  - Off label use [Unknown]
